FAERS Safety Report 18872863 (Version 2)
Quarter: 2021Q1

REPORT INFORMATION
  Report Type: Spontaneous
  Country: US (occurrence: US)
  Receive Date: 20210210
  Receipt Date: 20210224
  Transmission Date: 20210420
  Serious: No
  Sender: FDA-Public Use
  Company Number: US-SA-2021SA043940

PATIENT
  Age: 55 Year
  Sex: Female

DRUGS (2)
  1. DUPIXENT [Suspect]
     Active Substance: DUPILUMAB
     Dosage: 300 MG, QOW
     Route: 058
     Dates: start: 2021
  2. DUPIXENT [Suspect]
     Active Substance: DUPILUMAB
     Indication: DERMATITIS
     Dosage: 600MG, 1X
     Route: 058
     Dates: start: 20210115, end: 20210115

REACTIONS (5)
  - Cluster headache [Unknown]
  - Eye pain [Recovering/Resolving]
  - Product use in unapproved indication [Unknown]
  - Contusion [Unknown]
  - Injection site rash [Unknown]

NARRATIVE: CASE EVENT DATE: 2021
